FAERS Safety Report 24166557 (Version 1)
Quarter: 2024Q3

REPORT INFORMATION
  Report Type: Spontaneous
  Country: AU (occurrence: AU)
  Receive Date: 20240802
  Receipt Date: 20240802
  Transmission Date: 20241017
  Serious: Yes (Other)
  Sender: RANBAXY
  Company Number: AU-SUN PHARMACEUTICAL INDUSTRIES LTD-2024R1-460477

PATIENT
  Age: 21 Year
  Sex: Female

DRUGS (1)
  1. PREDNISONE [Suspect]
     Active Substance: PREDNISONE
     Indication: Immunosuppression
     Dosage: 5 MG AND 2.5 MG ALTERNATING, DAILY
     Route: 048

REACTIONS (7)
  - Shock [Unknown]
  - Abdominal pain [Unknown]
  - Vomiting [Unknown]
  - Proteus infection [Unknown]
  - Pseudomonas infection [Unknown]
  - Glucocorticoid deficiency [Unknown]
  - Secondary adrenocortical insufficiency [Unknown]
